FAERS Safety Report 23831163 (Version 1)
Quarter: 2024Q2

REPORT INFORMATION
  Report Type: Spontaneous
  Country: FR (occurrence: FR)
  Receive Date: 20240508
  Receipt Date: 20240508
  Transmission Date: 20240716
  Serious: Yes (Other)
  Sender: FDA-Public Use
  Company Number: None

PATIENT
  Age: 39 Year
  Sex: Female

DRUGS (3)
  1. LORLATINIB [Suspect]
     Active Substance: LORLATINIB
     Dosage: 75 MG, 1X/DAY
     Route: 048
     Dates: start: 20240322, end: 202404
  2. VIMPAT [Concomitant]
     Active Substance: LACOSAMIDE
     Dosage: 100MG - 0 - 100MG
     Route: 048
     Dates: start: 20180119
  3. LAMICTAL [Concomitant]
     Active Substance: LAMOTRIGINE
     Dosage: 150MG - 0 - 150MG
     Route: 048
     Dates: start: 20191230

REACTIONS (1)
  - Epilepsy [Recovering/Resolving]

NARRATIVE: CASE EVENT DATE: 20240301
